FAERS Safety Report 15812768 (Version 1)
Quarter: 2019Q1

REPORT INFORMATION
  Report Type: Spontaneous
  Country: US (occurrence: US)
  Receive Date: 20190111
  Receipt Date: 20190111
  Transmission Date: 20190417
  Serious: No
  Sender: FDA-Public Use
  Company Number: US-TEVA-2018-US-992308

PATIENT
  Sex: Female
  Weight: 70.31 kg

DRUGS (1)
  1. TRAZODONE [Suspect]
     Active Substance: TRAZODONE HYDROCHLORIDE
     Dosage: 1 MILLIGRAM DAILY;
     Route: 065

REACTIONS (1)
  - Ill-defined disorder [Unknown]
